FAERS Safety Report 5948950-9 (Version None)
Quarter: 2008Q4

REPORT INFORMATION
  Report Type: 
  Country: None (occurrence: None)
  Receive Date: 20081111
  Receipt Date: 20081030
  Transmission Date: 20090506
  Serious: Yes (Hospitalization, Other)
  Sender: FDA-Public Use
  Company Number: JP-PFIZER INC-2008071889

PATIENT
  Sex: Female
  Weight: 45 kg

DRUGS (8)
  1. SOLANAX [Suspect]
     Indication: PANIC DISORDER
     Route: 048
     Dates: start: 20080711, end: 20080816
  2. SOLANAX [Suspect]
     Indication: DEPRESSION
  3. WINTERMIN [Suspect]
     Route: 048
     Dates: start: 20080718, end: 20080812
  4. MEILAX [Suspect]
     Route: 048
     Dates: start: 20080718, end: 20080816
  5. DEPAS [Concomitant]
     Route: 048
     Dates: start: 20080718, end: 20080724
  6. CYANOCOBALAMIN [Concomitant]
     Route: 048
     Dates: start: 20080718, end: 20080812
  7. ZYPREXA [Concomitant]
     Route: 048
     Dates: start: 20080813, end: 20080816
  8. LEXOTAN [Concomitant]
     Route: 048
     Dates: start: 20070711, end: 20080717

REACTIONS (1)
  - LIVER DISORDER [None]
